FAERS Safety Report 17362234 (Version 1)
Quarter: 2020Q1

REPORT INFORMATION
  Report Type: Spontaneous
  Country: FR (occurrence: FR)
  Receive Date: 20200203
  Receipt Date: 20200203
  Transmission Date: 20200409
  Serious: Yes (Hospitalization)
  Sender: FDA-Public Use
  Company Number: FR-PFIZER INC-2020041145

PATIENT
  Age: 91 Year
  Sex: Female
  Weight: 64 kg

DRUGS (12)
  1. MACROGOL 4000 [Concomitant]
     Active Substance: POLYETHYLENE GLYCOL 4000
     Indication: CONSTIPATION
     Dosage: 1 DF, ALTERNATE DAY
     Route: 048
  2. MONTELUKAST [Concomitant]
     Active Substance: MONTELUKAST SODIUM
     Indication: CHRONIC RESPIRATORY FAILURE
     Dosage: 10 MG, 1X/DAY
     Route: 048
     Dates: start: 20171213
  3. ALPRAZOLAM. [Suspect]
     Active Substance: ALPRAZOLAM
     Dosage: 0.5 MG, 2X/DAY (1 MORNING AND NOON)
     Route: 048
     Dates: start: 20180413
  4. ESOMEPRAZOLE. [Concomitant]
     Active Substance: ESOMEPRAZOLE MAGNESIUM
     Dosage: 10 MG, 1X/DAY
     Route: 048
     Dates: start: 20180413
  5. SALBUTAMOL [Concomitant]
     Active Substance: ALBUTEROL
     Indication: CHRONIC RESPIRATORY FAILURE
     Dosage: 400 UG, 1X/DAY
     Route: 055
  6. INNOVAIR [Suspect]
     Active Substance: BECLOMETHASONE DIPROPIONATE\FORMOTEROL
     Indication: BRONCHOSPASM
     Dosage: 4 DF, DAILY (2 PUFFS MORNING AND EVENING)
     Route: 055
     Dates: start: 20191121, end: 20191231
  7. BISOPROLOL FUMARATE. [Concomitant]
     Active Substance: BISOPROLOL FUMARATE
     Indication: CARDIOVASCULAR DISORDER
     Dosage: 2.5 MG, 1X/DAY(2 IN THE EVENING)
     Route: 048
  8. ZOPICLONE [Suspect]
     Active Substance: ZOPICLONE
     Dosage: 3.75 MG, 1X/DAY
     Route: 048
     Dates: start: 20190522
  9. TERCIAN [CYAMEMAZINE TARTRATE] [Suspect]
     Active Substance: CYAMEMAZINE
     Dosage: 15 GTT, 1X/DAY
     Route: 048
     Dates: start: 20180413
  10. KARDEGIC [Concomitant]
     Active Substance: ASPIRIN DL-LYSINE
     Indication: CARDIOVASCULAR DISORDER
     Dosage: 160 MG, 1X/DAY (1 AT NOON)
     Route: 048
  11. NICARDIPINE [NICARDIPINE HYDROCHLORIDE] [Concomitant]
     Active Substance: NICARDIPINE HYDROCHLORIDE
     Indication: HYPERTENSION
     Dosage: 40 MG, 1X/DAY(1 MORNING AND EVENING)
     Route: 048
  12. PARACETAMOL [Concomitant]
     Active Substance: ACETAMINOPHEN
     Dosage: 6 DF, 1X/DAY(2-2-2)
     Route: 048

REACTIONS (3)
  - Condition aggravated [Recovered/Resolved]
  - Fall [Recovered/Resolved]
  - Confusional state [Recovered/Resolved]

NARRATIVE: CASE EVENT DATE: 20191122
